FAERS Safety Report 5252561-0 (Version None)
Quarter: 2007Q1

REPORT INFORMATION
  Report Type: 
  Country: None (occurrence: None)
  Receive Date: 20070301
  Receipt Date: 20070222
  Transmission Date: 20070707
  Serious: Yes (Hospitalization)
  Sender: FDA-Public Use
  Company Number: US-BAYER-200613852BCC

PATIENT
  Age: 69 Year
  Sex: Female
  Weight: 61 kg

DRUGS (12)
  1. ALEVE [Suspect]
     Indication: ARTHRALGIA
     Dosage: TOTAL DAILY DOSE: 440 MG  UNIT DOSE: 220 MG
     Route: 048
     Dates: start: 20060712, end: 20060723
  2. ALEVE [Suspect]
     Dosage: TOTAL DAILY DOSE: 220 MG  UNIT DOSE: 220 MG
     Route: 048
     Dates: start: 20060924
  3. IBUPROFEN [Suspect]
     Indication: DRUG USE FOR UNKNOWN INDICATION
     Route: 048
     Dates: start: 20060728, end: 20060730
  4. KEPPRA [Concomitant]
     Indication: ARTHRALGIA
     Dosage: TOTAL DAILY DOSE: 1000 MG
  5. FOSAMAX [Concomitant]
     Dosage: TOTAL DAILY DOSE: 70  MG
  6. EVISTA [Concomitant]
     Dosage: TOTAL DAILY DOSE: 70 MG
  7. CELEXA [Concomitant]
     Dosage: TOTAL DAILY DOSE: 80 MG
  8. MULTI-VITAMIN [Concomitant]
  9. CALTRATE + D [Concomitant]
     Dosage: TOTAL DAILY DOSE: 1200 MG  UNIT DOSE: 600 MG
  10. ASPIRIN [Concomitant]
     Dosage: TOTAL DAILY DOSE: 325 MG  UNIT DOSE: 325 MG
  11. GAS-X [Concomitant]
  12. CALCIUM [Concomitant]

REACTIONS (30)
  - ANOREXIA [None]
  - ARTHRALGIA [None]
  - ASTHENIA [None]
  - C-REACTIVE PROTEIN INCREASED [None]
  - CONFUSIONAL STATE [None]
  - DEHYDRATION [None]
  - FATIGUE [None]
  - FLUSHING [None]
  - HALLUCINATION [None]
  - HEADACHE [None]
  - HEPATIC ENZYME ABNORMAL [None]
  - HEPATIC FAILURE [None]
  - HEPATITIS ACUTE [None]
  - HEPATOCELLULAR DAMAGE [None]
  - JAUNDICE [None]
  - LEUKOCYTOSIS [None]
  - LYMPHATIC DISORDER [None]
  - NAUSEA [None]
  - NEUTROPHILIA [None]
  - NORMOCHROMIC NORMOCYTIC ANAEMIA [None]
  - PRURITUS [None]
  - PYREXIA [None]
  - RASH [None]
  - RECTAL HAEMORRHAGE [None]
  - RED BLOOD CELL COUNT DECREASED [None]
  - SNEEZING [None]
  - SWELLING [None]
  - VIRAL INFECTION [None]
  - VOMITING [None]
  - WHITE BLOOD CELL COUNT INCREASED [None]
